FAERS Safety Report 6254624-X (Version None)
Quarter: 2009Q3

REPORT INFORMATION
  Report Type: 
  Country: None (occurrence: None)
  Receive Date: 20090702
  Receipt Date: 20090627
  Transmission Date: 20100115
  Serious: Yes (Death)
  Sender: FDA-Public Use
  Company Number: A0795031A

PATIENT
  Age: 44 Year
  Sex: Female

DRUGS (3)
  1. TYKERB [Suspect]
     Indication: BREAST CANCER
     Dosage: 1250MG SEE DOSAGE TEXT
     Route: 065
     Dates: start: 20080301
  2. CAPECITABINE [Concomitant]
     Indication: DRUG USE FOR UNKNOWN INDICATION
  3. ZOLEDRONIC ACID [Concomitant]

REACTIONS (2)
  - METASTASES TO CENTRAL NERVOUS SYSTEM [None]
  - THERAPEUTIC RESPONSE UNEXPECTED [None]
